FAERS Safety Report 25899616 (Version 1)
Quarter: 2025Q4

REPORT INFORMATION
  Report Type: Spontaneous
  Country: US (occurrence: US)
  Receive Date: 20251009
  Receipt Date: 20251009
  Transmission Date: 20260118
  Serious: No
  Sender: ELI LILLY AND COMPANY
  Company Number: US-ELI_LILLY_AND_COMPANY-US202510005261

PATIENT
  Age: 19 Year
  Sex: Female

DRUGS (2)
  1. EMGALITY [Suspect]
     Active Substance: GALCANEZUMAB-GNLM
     Indication: Migraine
     Dosage: 120 MG, OTHER (120 MG AS LOADING DOSE, TOOK THE 2ND 120 MG THE FOLLOWING MONTH)
     Route: 058
  2. EMGALITY [Suspect]
     Active Substance: GALCANEZUMAB-GNLM
     Dosage: 120 MG, OTHER (120 MG AS LOADING DOSE, TOOK THE 2ND 120 MG THE FOLLOWING MONTH)
     Route: 058

REACTIONS (1)
  - Incorrect dose administered [Unknown]
